FAERS Safety Report 7106290-9 (Version None)
Quarter: 2010Q4

REPORT INFORMATION
  Report Type: 
  Country: None (occurrence: None)
  Receive Date: 20101116
  Receipt Date: 20101110
  Transmission Date: 20110411
  Serious: Yes (Other)
  Sender: FDA-Public Use
  Company Number: VE-PFIZER INC-2010147030

PATIENT
  Age: 65 Year
  Sex: Female
  Weight: 56 kg

DRUGS (4)
  1. LIPITOR [Suspect]
     Indication: HYPERCHOLESTEROLAEMIA
     Dosage: 40 MG, 1X/DAY
     Route: 048
     Dates: start: 20080101, end: 20101001
  2. MANDELAMINE [Concomitant]
     Dosage: 500 MG, 3X/DAY
     Route: 048
  3. CIPROFLOXACIN [Concomitant]
     Indication: ANTIBIOTIC THERAPY
     Dosage: 500 MG, 2X/DAY
     Route: 048
     Dates: start: 20101001
  4. DAFLON [Concomitant]
     Indication: VARICOSE VEIN
     Dosage: 500 MG, 1X/DAY
     Route: 048
     Dates: start: 20070101

REACTIONS (1)
  - VARICOSE VEIN [None]
